FAERS Safety Report 17616354 (Version 1)
Quarter: 2020Q2

REPORT INFORMATION
  Report Type: Report from Study
  Country: IN (occurrence: IN)
  Receive Date: 20200402
  Receipt Date: 20200402
  Transmission Date: 20200713
  Serious: Yes (Death, Hospitalization)
  Sender: FDA-Public Use
  Company Number: PHHY2019IN219855

PATIENT
  Age: 85 Year
  Sex: Male

DRUGS (1)
  1. VYMADA [Suspect]
     Active Substance: SACUBITRIL\VALSARTAN
     Indication: CARDIAC FAILURE
     Dosage: 100 MG (SACUBITRIL 49MG AND VALSARTAN 51MG), BID
     Route: 048
     Dates: start: 20181124

REACTIONS (4)
  - Peripheral swelling [Recovering/Resolving]
  - Cardiac arrest [Fatal]
  - Prostatomegaly [Not Recovered/Not Resolved]
  - Bone marrow disorder [Not Recovered/Not Resolved]
